FAERS Safety Report 5928971-2 (Version None)
Quarter: 2008Q4

REPORT INFORMATION
  Report Type: 
  Country: None (occurrence: None)
  Receive Date: 20081024
  Receipt Date: 20081013
  Transmission Date: 20090506
  Serious: Yes (Other)
  Sender: FDA-Public Use
  Company Number: US-BAYER-200835657NA

PATIENT
  Age: 48 Year
  Sex: Female
  Weight: 92 kg

DRUGS (3)
  1. MIRENA [Suspect]
     Indication: HORMONE REPLACEMENT THERAPY
     Route: 015
     Dates: start: 20081001, end: 20081008
  2. KLONOPIN [Concomitant]
  3. SEROQUEL [Concomitant]

REACTIONS (3)
  - HEADACHE [None]
  - HYPERTENSION [None]
  - POST PROCEDURAL DISCOMFORT [None]
